FAERS Safety Report 20884056 (Version 2)
Quarter: 2022Q2

REPORT INFORMATION
  Report Type: Spontaneous
  Country: US (occurrence: US)
  Receive Date: 20220527
  Receipt Date: 20220531
  Transmission Date: 20220721
  Serious: No
  Sender: FDA-Public Use
  Company Number: US-PFIZER INC-202200751128

PATIENT
  Sex: Male

DRUGS (3)
  1. PAXLOVID [Suspect]
     Active Substance: NIRMATRELVIR\RITONAVIR
     Indication: COVID-19 treatment
     Dosage: UNK
  2. ADVIL COLD + FLU [DIPHENHYDRAMINE CITRATE;IBUPROFEN] [Concomitant]
     Indication: Nasopharyngitis
     Dosage: UNK
  3. ADVIL COLD + FLU [DIPHENHYDRAMINE CITRATE;IBUPROFEN] [Concomitant]
     Indication: Influenza

REACTIONS (3)
  - Abdominal discomfort [Unknown]
  - Dysgeusia [Unknown]
  - Product taste abnormal [Unknown]
